FAERS Safety Report 7183507-6 (Version None)
Quarter: 2010Q4

REPORT INFORMATION
  Report Type: 
  Country: None (occurrence: None)
  Receive Date: 20101222
  Receipt Date: 20101210
  Transmission Date: 20110411
  Serious: Yes (Other)
  Sender: FDA-Public Use
  Company Number: PHHY2010BR84635

PATIENT
  Sex: Male

DRUGS (2)
  1. FORASEQ [Suspect]
  2. STARFORM [Suspect]

REACTIONS (5)
  - ABSCESS BACTERIAL [None]
  - DEAFNESS [None]
  - EAR OPERATION [None]
  - NECROSIS [None]
  - TYMPANIC MEMBRANE PERFORATION [None]
